FAERS Safety Report 16124677 (Version 4)
Quarter: 2020Q1

REPORT INFORMATION
  Report Type: Report from Study
  Country: CR (occurrence: CR)
  Receive Date: 20190327
  Receipt Date: 20200124
  Transmission Date: 20200409
  Serious: Yes (Other)
  Sender: FDA-Public Use
  Company Number: PHHY2019CR066778

PATIENT
  Age: 40 Year
  Sex: Male

DRUGS (1)
  1. SCAPHO [Suspect]
     Active Substance: SECUKINUMAB
     Indication: ANKYLOSING SPONDYLITIS
     Dosage: 150 MG, QMO
     Route: 058
     Dates: start: 20181123, end: 20191118

REACTIONS (6)
  - Haemorrhagic urticaria [Unknown]
  - Tongue injury [Unknown]
  - Dry skin [Unknown]
  - Dermatitis allergic [Recovered/Resolved]
  - Tongue haemorrhage [Unknown]
  - Skin exfoliation [Recovered/Resolved]
